FAERS Safety Report 15766749 (Version 1)
Quarter: 2018Q4

REPORT INFORMATION
  Report Type: Spontaneous
  Country: CH (occurrence: CH)
  Receive Date: 20181227
  Receipt Date: 20181227
  Transmission Date: 20190205
  Serious: Yes (Hospitalization, Other)
  Sender: FDA-Public Use
  Company Number: PHHY2018CH190275

PATIENT
  Age: 63 Year
  Sex: Female

DRUGS (9)
  1. DAFALGAN [Concomitant]
     Active Substance: ACETAMINOPHEN
     Indication: PRODUCT USED FOR UNKNOWN INDICATION
     Dosage: 1 G, QID (1-1-1-1)
     Route: 065
  2. PANTOZOL [Concomitant]
     Active Substance: PANTOPRAZOLE SODIUM
     Indication: GASTROOESOPHAGEAL REFLUX DISEASE
     Dosage: 20 MG, QD (1-0-0)
     Route: 065
  3. REQUIP [Suspect]
     Active Substance: ROPINIROLE HYDROCHLORIDE
     Indication: PARKINSONISM
     Dosage: 4 MG, QD (1-0-0)
     Route: 048
     Dates: end: 2018
  4. ZOLEDRONAT OSTEO SANDOZ [Suspect]
     Active Substance: ZOLEDRONIC ACID ANHYDROUS
     Indication: OSTEOPOROSIS
     Dosage: 5 MG, UNK (TOTAL)
     Route: 042
     Dates: start: 20171212, end: 20171212
  5. CIPRALEX [Concomitant]
     Active Substance: ESCITALOPRAM OXALATE
     Indication: DEPRESSION
     Dosage: UNK UNK, QD (0-0-1)
     Route: 065
  6. KALCIPOS D3 [Concomitant]
     Indication: PRODUCT USED FOR UNKNOWN INDICATION
     Dosage: UNK UNK, QD (1-0-0)
     Route: 065
  7. VITAMIN D3 STREULI [Concomitant]
     Active Substance: CHOLECALCIFEROL
     Indication: PRODUCT USED FOR UNKNOWN INDICATION
     Dosage: 2 ML, QW
     Route: 065
  8. NOVALGIN (METAMIZOLE SODIUM) [Concomitant]
     Active Substance: METAMIZOLE SODIUM
     Indication: PRODUCT USED FOR UNKNOWN INDICATION
     Dosage: MAXIMUM 2 TABLETS EVERY 6 HOURS
     Route: 065
  9. TEMESTA [Concomitant]
     Indication: PRODUCT USED FOR UNKNOWN INDICATION
     Dosage: AS REQUIRED
     Route: 065

REACTIONS (4)
  - Hallucination [Recovered/Resolved with Sequelae]
  - Delusion [Recovered/Resolved]
  - Suicidal ideation [Recovered/Resolved with Sequelae]
  - Psychotic symptom [Recovering/Resolving]

NARRATIVE: CASE EVENT DATE: 20171214
